FAERS Safety Report 16962229 (Version 2)
Quarter: 2019Q4

REPORT INFORMATION
  Report Type: Spontaneous
  Country: CO (occurrence: CO)
  Receive Date: 20191025
  Receipt Date: 20191203
  Transmission Date: 20200122
  Serious: Yes (Congenital Anomaly, Other)
  Sender: FDA-Public Use
  Company Number: CO-SA-2019SA280662

PATIENT
  Sex: Male

DRUGS (1)
  1. AUBAGIO [Suspect]
     Active Substance: TERIFLUNOMIDE
     Indication: MULTIPLE SCLEROSIS
     Dosage: 14 MG
     Route: 064
     Dates: start: 20150216, end: 201904

REACTIONS (4)
  - Persistent left superior vena cava [Not Recovered/Not Resolved]
  - Atrial septal defect [Not Recovered/Not Resolved]
  - Ductus venosus agenesis [Not Recovered/Not Resolved]
  - Coronary artery dilatation [Not Recovered/Not Resolved]

NARRATIVE: CASE EVENT DATE: 201910
